FAERS Safety Report 12271214 (Version 2)
Quarter: 2016Q2

REPORT INFORMATION
  Report Type: Report from Study
  Country: US (occurrence: US)
  Receive Date: 20160415
  Receipt Date: 20160616
  Transmission Date: 20160815
  Serious: Yes (Death, Hospitalization, Other)
  Sender: FDA-Public Use
  Company Number: US-GILEAD-2016-0207847

PATIENT
  Age: 87 Year
  Sex: Female

DRUGS (11)
  1. VITAMIN B12 [Concomitant]
     Active Substance: CYANOCOBALAMIN
  2. HIGH OMEGA FLAXSEED [Concomitant]
  3. MVI                                /07504101/ [Concomitant]
  4. AMBRISENTAN [Suspect]
     Active Substance: AMBRISENTAN
     Indication: PULMONARY HYPERTENSION
     Dosage: 5 MG, QD
     Route: 065
     Dates: start: 20101026, end: 20160610
  5. OMEPRAZOLE. [Concomitant]
     Active Substance: OMEPRAZOLE
  6. OXYBUTYNIN [Concomitant]
     Active Substance: OXYBUTYNIN
  7. LOSARTAN. [Concomitant]
     Active Substance: LOSARTAN
  8. AMLODIPINE [Concomitant]
     Active Substance: AMLODIPINE BESYLATE
  9. FUROSEMIDE. [Concomitant]
     Active Substance: FUROSEMIDE
  10. CLONIDINE. [Concomitant]
     Active Substance: CLONIDINE
  11. FISH OIL [Concomitant]
     Active Substance: FISH OIL

REACTIONS (3)
  - Fluid retention [Fatal]
  - Intestinal obstruction [Recovered/Resolved]
  - Drug dose omission [Unknown]

NARRATIVE: CASE EVENT DATE: 20160403
